FAERS Safety Report 10249895 (Version 2)
Quarter: 2015Q1

REPORT INFORMATION
  Report Type: Spontaneous
  Country: US (occurrence: US)
  Receive Date: 20140620
  Receipt Date: 20150203
  Transmission Date: 20150720
  Serious: Yes (Other)
  Sender: FDA-Public Use
  Company Number: US-PFIZER INC-2014166943

PATIENT
  Age: 49 Year
  Sex: Male
  Weight: 96.15 kg

DRUGS (4)
  1. LYRICA [Suspect]
     Active Substance: PREGABALIN
     Indication: HERPES ZOSTER
     Dosage: 100 MG, 3X/DAY
  2. HYDROCODONE [Concomitant]
     Active Substance: HYDROCODONE
     Dosage: UNK
  3. PAXIL [Concomitant]
     Active Substance: PAROXETINE HYDROCHLORIDE
     Dosage: 40 MG, 1X/DAY
  4. LYRICA [Suspect]
     Active Substance: PREGABALIN
     Indication: PAIN

REACTIONS (8)
  - Cerebrovascular accident [Unknown]
  - Arthralgia [Unknown]
  - Tremor [Recovered/Resolved]
  - Back pain [Unknown]
  - Inflammation [Unknown]
  - Seizure [Recovered/Resolved]
  - Spinal column stenosis [Unknown]
  - Lung disorder [Unknown]
